FAERS Safety Report 9311104 (Version 3)
Quarter: 2014Q1

REPORT INFORMATION
  Report Type: Spontaneous
  Country: US (occurrence: US)
  Receive Date: 20130528
  Receipt Date: 20140131
  Transmission Date: 20141002
  Serious: Yes (Other)
  Sender: FDA-Public Use
  Company Number: US-PFIZER INC-2013158287

PATIENT
  Sex: Female

DRUGS (17)
  1. SPIRONOLACTONE [Concomitant]
     Dosage: 25 MG, DAILY (DAILY AM)
     Route: 048
  2. COZAAR [Concomitant]
     Dosage: 25 MG, 2X/DAY (50MG, 1/2 TAB DAILY MID DAY)
  3. VAGIFEM [Concomitant]
     Dosage: 10 UG, 3X/WEEK
  4. PARACETAMOL [Concomitant]
     Indication: ARTHRALGIA
     Dosage: 500 MG, UNK
  5. TIKOSYN [Suspect]
     Indication: ATRIAL FIBRILLATION
     Dosage: 0.25 MG, DAILY (1 DAILY Q 12 HR 9AM-9 PM)
     Dates: start: 201103
  6. TIKOSYN [Suspect]
     Indication: ATRIOVENTRICULAR BLOCK
  7. MECLOZINE HCL [Suspect]
     Indication: VERTIGO
     Dosage: UNK
  8. MECLOZINE HCL [Suspect]
     Indication: DIZZINESS
     Dosage: 25 MG, 1X/DAY
  9. NEXIUM [Concomitant]
     Indication: GASTROOESOPHAGEAL REFLUX DISEASE
     Dosage: 40 MG, 1X/DAY (1 CAP IN AM)
  10. WELCHOL [Concomitant]
     Indication: GALLBLADDER OPERATION
     Dosage: 1875 MG, 2X/DAY (625MGM THREE TWICE DAILY, (ONE HOUR BEFORE OR AFTER MEDS OR MEALS))
  11. SYNTHROID [Concomitant]
     Indication: HYPOTHYROIDISM
     Dosage: 100 UG, DAILY (1 DAILY AM NO FOOD)
  12. ZETIA [Concomitant]
     Indication: BLOOD CHOLESTEROL ABNORMAL
     Dosage: 10 MG, DAILY
  13. MAGNESIUM [Concomitant]
     Indication: CARDIAC DISORDER
     Dosage: 400 MG, DAILY
  14. CALCIUM 600 + VITAMIN D 400 [Concomitant]
     Indication: MASTECTOMY
     Dosage: UNK, DAILY
  15. LASIX [Concomitant]
     Dosage: 40 MG, DAILY (AM DAILY)
  16. PRADAXA [Concomitant]
     Dosage: 150 MG, DAILY (AM AND PM)
     Route: 048
  17. LOPRESSOR [Concomitant]
     Dosage: 50 MG, 2X/DAY (100 MG, 1/2 TAB TWICE DAILY, AM AND PM )

REACTIONS (4)
  - Arthropathy [Unknown]
  - Vertigo [Unknown]
  - Restless legs syndrome [Unknown]
  - Drug ineffective [Unknown]
